FAERS Safety Report 11212343 (Version 1)
Quarter: 2015Q2

REPORT INFORMATION
  Report Type: Spontaneous
  Country: US (occurrence: US)
  Receive Date: 20150623
  Receipt Date: 20150623
  Transmission Date: 20150821
  Serious: No
  Sender: FDA-Public Use
  Company Number: US-PFIZER INC-2015205088

PATIENT
  Age: 65 Year
  Sex: Male
  Weight: 82.5 kg

DRUGS (1)
  1. INLYTA [Suspect]
     Active Substance: AXITINIB
     Indication: OESOPHAGEAL CARCINOMA
     Dosage: 1 MG, 2X/DAY
     Dates: start: 2013

REACTIONS (2)
  - Diarrhoea [Recovered/Resolved]
  - Product use issue [Unknown]
